FAERS Safety Report 17369805 (Version 1)
Quarter: 2020Q1

REPORT INFORMATION
  Report Type: Report from Study
  Country: None (occurrence: US)
  Receive Date: 20200205
  Receipt Date: 20200205
  Transmission Date: 20200409
  Serious: Yes (Other)
  Sender: FDA-Public Use
  Company Number: US-ABBVIE-20K-163-3258327-00

PATIENT
  Sex: Female

DRUGS (2)
  1. HUMIRA [Suspect]
     Active Substance: ADALIMUMAB
     Dosage: CITRATE FREE
     Route: 058
     Dates: start: 2019, end: 2019
  2. HUMIRA [Suspect]
     Active Substance: ADALIMUMAB
     Indication: RHEUMATOID ARTHRITIS
     Dosage: CITRATE FREE
     Route: 058
     Dates: end: 2019

REACTIONS (9)
  - Root canal infection [Recovered/Resolved]
  - Facial pain [Recovered/Resolved]
  - Pain in extremity [Recovered/Resolved]
  - Angiopathy [Recovered/Resolved]
  - Injection site pain [Not Recovered/Not Resolved]
  - Tendonitis [Recovered/Resolved]
  - Skin texture abnormal [Not Recovered/Not Resolved]
  - Swelling face [Recovered/Resolved]
  - Peripheral swelling [Recovered/Resolved]

NARRATIVE: CASE EVENT DATE: 2017
